FAERS Safety Report 7384179-8 (Version None)
Quarter: 2011Q1

REPORT INFORMATION
  Report Type: 
  Country: None (occurrence: None)
  Receive Date: 20110330
  Receipt Date: 20110321
  Transmission Date: 20110831
  Serious: Yes (Hospitalization)
  Sender: FDA-Public Use
  Company Number: B0708709A

PATIENT
  Age: 71 Year
  Sex: Female

DRUGS (8)
  1. CLARITHROMYCIN [Suspect]
     Dosage: 400MG PER DAY
     Route: 065
     Dates: start: 20100824
  2. ATENOLOL [Suspect]
     Dosage: 25MG PER DAY
  3. PROPAFENONE [Suspect]
     Dosage: 300MG PER DAY
     Route: 065
  4. PILSICAINIDE HYDROCHLORIDE [Suspect]
     Route: 065
  5. OVER COUNTER COLD REMEDY [Suspect]
     Route: 065
  6. OLMESARTAN MEDOXOMIL [Suspect]
     Route: 065
  7. AZELNIDIPINE [Suspect]
     Route: 065
  8. TRICHLORMETHIAZIDE [Suspect]
     Route: 065

REACTIONS (3)
  - BRADYCARDIA [None]
  - DRUG INTERACTION [None]
  - CARDIAC ARREST [None]
